FAERS Safety Report 18711684 (Version 1)
Quarter: 2021Q1

REPORT INFORMATION
  Report Type: Spontaneous
  Country: JP (occurrence: JP)
  Receive Date: 20210107
  Receipt Date: 20210107
  Transmission Date: 20210419
  Serious: Yes (Other)
  Sender: FDA-Public Use
  Company Number: JP-EXELIXIS-CABO-20036349

PATIENT
  Age: 5 Decade
  Sex: Female

DRUGS (2)
  1. CABOMETYX [Suspect]
     Active Substance: CABOZANTINIB S-MALATE
     Dosage: 40 MILLIGRAM
     Route: 065
     Dates: start: 20201218
  2. CABOMETYX [Suspect]
     Active Substance: CABOZANTINIB S-MALATE
     Indication: RENAL CANCER
     Dosage: 60 MILLIGRAM
     Route: 065
     Dates: start: 20200709, end: 20201217

REACTIONS (2)
  - Renal impairment [Unknown]
  - Diarrhoea [Recovered/Resolved]

NARRATIVE: CASE EVENT DATE: 20201218
